FAERS Safety Report 7280178-5 (Version None)
Quarter: 2011Q1

REPORT INFORMATION
  Report Type: 
  Country: None (occurrence: None)
  Receive Date: 20110208
  Receipt Date: 20110202
  Transmission Date: 20110831
  Serious: Yes (Other)
  Sender: FDA-Public Use
  Company Number: US-AMGEN-USASP2011006263

PATIENT
  Sex: Female

DRUGS (2)
  1. ANTINEOPLASTIC AGENTS [Concomitant]
     Dosage: UNK UNK, Q3WK
     Dates: start: 20060101
  2. NEULASTA [Suspect]
     Indication: CHEMOTHERAPY
     Dosage: UNK UNK, Q3WK
     Dates: start: 20060101

REACTIONS (1)
  - BREAST CANCER METASTATIC [None]
